FAERS Safety Report 14503131 (Version 3)
Quarter: 2018Q4

REPORT INFORMATION
  Report Type: Spontaneous
  Country: US (occurrence: US)
  Receive Date: 20180208
  Receipt Date: 20181221
  Transmission Date: 20190204
  Serious: No
  Sender: FDA-Public Use
  Company Number: US-PFIZER INC-2018055191

PATIENT
  Age: 37 Year
  Sex: Female
  Weight: 82.55 kg

DRUGS (4)
  1. LORATADINE. [Suspect]
     Active Substance: LORATADINE
     Indication: NASAL CONGESTION
     Dosage: UNK
  2. ZYRTEC [Suspect]
     Active Substance: CETIRIZINE HYDROCHLORIDE
     Indication: NASAL CONGESTION
  3. DIPHENHYDRAMINE HCL [Suspect]
     Active Substance: DIPHENHYDRAMINE HYDROCHLORIDE
     Indication: NASAL CONGESTION
     Dosage: UNK
  4. FLUTICASONE. [Suspect]
     Active Substance: FLUTICASONE
     Indication: NASAL CONGESTION
     Dosage: UNK

REACTIONS (1)
  - Drug ineffective [Unknown]
